FAERS Safety Report 7050907-4 (Version None)
Quarter: 2010Q4

REPORT INFORMATION
  Report Type: 
  Country: None (occurrence: None)
  Receive Date: 20101019
  Receipt Date: 20101008
  Transmission Date: 20110411
  Serious: Yes (Other)
  Sender: FDA-Public Use
  Company Number: US-JNJFOC-20100903454

PATIENT
  Age: 51 Year
  Sex: Female

DRUGS (4)
  1. DOXIL [Suspect]
     Indication: OVARIAN CANCER
     Route: 042
  2. DOXIL [Suspect]
     Route: 042
  3. TAXOL [Suspect]
     Indication: OVARIAN CANCER
     Route: 065
  4. TAXOTERE [Suspect]
     Indication: OVARIAN CANCER
     Route: 065

REACTIONS (6)
  - DYSPNOEA [None]
  - FLUSHING [None]
  - HYPOTENSION [None]
  - INFUSION RELATED REACTION [None]
  - LOSS OF CONSCIOUSNESS [None]
  - TACHYCARDIA [None]
